FAERS Safety Report 17274071 (Version 3)
Quarter: 2024Q2

REPORT INFORMATION
  Report Type: Spontaneous
  Country: CN (occurrence: CN)
  Receive Date: 20200115
  Receipt Date: 20240417
  Transmission Date: 20240716
  Serious: Yes (Other)
  Sender: FDA-Public Use
  Company Number: CN-PFIZER INC-2020006270

PATIENT
  Age: 28 Year
  Sex: Male

DRUGS (2)
  1. METHYLPREDNISOLONE [Suspect]
     Active Substance: METHYLPREDNISOLONE
     Indication: Immune thrombocytopenia
     Dosage: 40 MG, DAILY
     Route: 048
  2. DANAZOL [Suspect]
     Active Substance: DANAZOL
     Indication: Immune thrombocytopenia
     Dosage: 100 MG, 2X/DAY
     Route: 048

REACTIONS (1)
  - Acne fulminans [Recovered/Resolved]
